FAERS Safety Report 5212005-1 (Version None)
Quarter: 2007Q1

REPORT INFORMATION
  Report Type: 
  Country: None (occurrence: None)
  Receive Date: 20070118
  Receipt Date: 20070117
  Transmission Date: 20070707
  Serious: Yes (Hospitalization)
  Sender: FDA-Public Use
  Company Number: FR-GLAXOSMITHKLINE-B0454379A

PATIENT
  Age: 12 Year
  Sex: Female
  Weight: 40 kg

DRUGS (2)
  1. FORTUM [Suspect]
     Indication: LUNG INFECTION
     Dosage: 4G PER DAY
     Route: 042
     Dates: start: 20051001, end: 20061018
  2. NEBCIN [Suspect]
     Indication: LUNG INFECTION
     Dosage: 400MG PER DAY
     Route: 042
     Dates: start: 20051001, end: 20061018

REACTIONS (2)
  - DYSARTHRIA [None]
  - HENOCH-SCHONLEIN PURPURA [None]
